FAERS Safety Report 9217625 (Version 1)
Quarter: 2013Q2

REPORT INFORMATION
  Report Type: Spontaneous
  Country: GB (occurrence: GB)
  Receive Date: 20130408
  Receipt Date: 20130408
  Transmission Date: 20140414
  Serious: Yes (Life-Threatening, Hospitalization)
  Sender: FDA-Public Use
  Company Number: GB-ASTRAZENECA-2013SE21422

PATIENT
  Age: 81 Year
  Sex: Female
  Weight: 79 kg

DRUGS (8)
  1. BRILIQUE [Suspect]
     Indication: STENT PLACEMENT
     Route: 048
     Dates: start: 20130228, end: 20130308
  2. AMIODARONE [Concomitant]
     Indication: ATRIAL FIBRILLATION
     Route: 048
     Dates: start: 20130226
  3. ASPIRIN [Concomitant]
     Indication: ISCHAEMIC HEART DISEASE PROPHYLAXIS
     Route: 048
     Dates: start: 20130226
  4. ATORVASTATIN [Concomitant]
     Indication: ISCHAEMIC HEART DISEASE PROPHYLAXIS
     Route: 048
     Dates: start: 20130226
  5. BENDROFLUMETHIAZIDE [Concomitant]
     Route: 048
  6. BISOPROLOL [Concomitant]
     Indication: ATRIAL FIBRILLATION
     Route: 048
  7. FUROSEMIDE [Concomitant]
     Indication: LEFT VENTRICULAR FAILURE
     Route: 048
     Dates: start: 20130226
  8. IRBESARTAN [Concomitant]
     Indication: HYPERTENSION
     Route: 048

REACTIONS (2)
  - Acute respiratory distress syndrome [Not Recovered/Not Resolved]
  - Traumatic lung injury [Not Recovered/Not Resolved]
